FAERS Safety Report 4643669-9 (Version None)
Quarter: 2005Q2

REPORT INFORMATION
  Report Type: 
  Country: None (occurrence: None)
  Receive Date: 20050425
  Receipt Date: 20050413
  Transmission Date: 20051028
  Serious: Yes (Other)
  Sender: FDA-Public Use
  Company Number: US-JNJFOC-20050403349

PATIENT
  Sex: Female

DRUGS (3)
  1. DOXIL [Suspect]
     Indication: BREAST CANCER
     Route: 042
  2. TAXOTERE [Suspect]
     Indication: BREAST CANCER
     Route: 042
  3. PYRIDOXINE HCL [Suspect]
     Indication: DRUG USE FOR UNKNOWN INDICATION
     Route: 049

REACTIONS (1)
  - PNEUMONITIS [None]
